FAERS Safety Report 19188983 (Version 1)
Quarter: 2021Q2

REPORT INFORMATION
  Report Type: Report from Study
  Country: CA (occurrence: CA)
  Receive Date: 20210428
  Receipt Date: 20210428
  Transmission Date: 20210717
  Serious: Yes (Other)
  Sender: FDA-Public Use
  Company Number: CA-JNJFOC-20210345012

PATIENT
  Age: 47 Year
  Sex: Female
  Weight: 121 kg

DRUGS (1)
  1. REMICADE [Suspect]
     Active Substance: INFLIXIMAB
     Indication: CROHN^S DISEASE
     Route: 042

REACTIONS (5)
  - Constipation [Unknown]
  - Abdominal distension [Unknown]
  - Flatulence [Unknown]
  - Fungal infection [Unknown]
  - Abdominal pain [Unknown]

NARRATIVE: CASE EVENT DATE: 202103
